FAERS Safety Report 8424161-2 (Version None)
Quarter: 2012Q2

REPORT INFORMATION
  Report Type: 
  Country: None (occurrence: None)
  Receive Date: 20120608
  Receipt Date: 20120313
  Transmission Date: 20120825
  Serious: No
  Sender: FDA-Public Use
  Company Number: US-ASTRAZENECA-2012SE09737

PATIENT
  Age: 56 Year
  Sex: Female
  Weight: 53.5 kg

DRUGS (3)
  1. PREMPRO [Concomitant]
     Indication: BONE DENSITY DECREASED
  2. PULMICORT FLEXHALER [Suspect]
     Indication: ASTHMA
     Route: 055
     Dates: start: 20070101
  3. PREMPRO [Concomitant]
     Indication: MENOPAUSAL SYMPTOMS

REACTIONS (2)
  - CIRCUMSTANCE OR INFORMATION CAPABLE OF LEADING TO MEDICATION ERROR [None]
  - CHEST DISCOMFORT [None]
